FAERS Safety Report 6937567-5 (Version None)
Quarter: 2010Q3

REPORT INFORMATION
  Report Type: 
  Country: None (occurrence: None)
  Receive Date: 20100823
  Receipt Date: 20100810
  Transmission Date: 20110219
  Serious: Yes (Hospitalization)
  Sender: FDA-Public Use
  Company Number: ES-ELI_LILLY_AND_COMPANY-ES201008003225

PATIENT
  Sex: Female

DRUGS (6)
  1. FORTEO [Suspect]
     Indication: OSTEOPOROSIS
     Dosage: 20 UG, DAILY (1/D)
     Route: 058
     Dates: start: 20100518
  2. PANTECTA [Concomitant]
     Indication: ABDOMINAL DISCOMFORT
     Dosage: UNK, DAILY (1/D)
     Route: 048
  3. NORVASC [Concomitant]
     Indication: HYPERTENSION
     Dosage: 5 MG, DAILY (1/D)
     Route: 065
  4. TRANKIMAZIN [Concomitant]
     Dosage: 1 MG, DAILY (1/D)
     Route: 048
  5. LEVOTHROID [Concomitant]
     Indication: HYPOTHYROIDISM
     Dosage: UNK, DAILY (1/D)
     Route: 048
  6. ANTIBIOTICS [Concomitant]
     Indication: LIMB DISCOMFORT
     Dosage: UNK, UNKNOWN
     Route: 065
     Dates: start: 20100801

REACTIONS (3)
  - ERYTHEMA [None]
  - FEELING HOT [None]
  - OEDEMA PERIPHERAL [None]
